FAERS Safety Report 8644662 (Version 4)
Quarter: 2014Q3

REPORT INFORMATION
  Report Type: Report from Study
  Country: CA (occurrence: CA)
  Receive Date: 20120702
  Receipt Date: 20140803
  Transmission Date: 20150326
  Serious: Yes (Other)
  Sender: FDA-Public Use
  Company Number: CA-BRISTOL-MYERS SQUIBB COMPANY-16703324

PATIENT
  Age: 62 Year
  Sex: Female
  Weight: 89 kg

DRUGS (9)
  1. SULFASALAZINE. [Concomitant]
     Active Substance: SULFASALAZINE
  2. ABATACEPT [Suspect]
     Active Substance: ABATACEPT
     Indication: RHEUMATOID ARTHRITIS
     Dosage: INF:8,LAST INFUSION ON 24-MAY-2012  LAST INFUSION ON 15-JAN-2014.  3J75953- EXP DATE:JUL-2016.
     Route: 042
     Dates: start: 20111201, end: 20141202
  3. METHOTREXATE [Concomitant]
     Active Substance: METHOTREXATE
     Dosage: INJECTION
  4. OXYCODONE HYDROCHLORIDE AND ACETAMINOPHEN [Concomitant]
     Active Substance: ACETAMINOPHEN\OXYCODONE HYDROCHLORIDE
  5. AMITRIPTYLINE [Concomitant]
     Active Substance: AMITRIPTYLINE
  6. PLAQUENIL [Concomitant]
     Active Substance: HYDROXYCHLOROQUINE SULFATE
  7. EXTERNAL-PREDNISONE [Concomitant]
  8. LANACANE [Suspect]
     Active Substance: BENZOCAINE
     Indication: PAIN
     Dosage: 160 MG, TOTAL
  9. LYRICA [Concomitant]
     Active Substance: PREGABALIN

REACTIONS (5)
  - Paraplegia [Not Recovered/Not Resolved]
  - Faeces discoloured [Recovering/Resolving]
  - Upper respiratory tract infection [Unknown]
  - Dehydration [None]
  - Meniscus injury [Unknown]

NARRATIVE: CASE EVENT DATE: 201206
